FAERS Safety Report 17201289 (Version 1)
Quarter: 2020Q1

REPORT INFORMATION
  Report Type: Spontaneous
  Country: US (occurrence: US)
  Receive Date: 20191224
  Receipt Date: 20191224
  Transmission Date: 20200409
  Serious: Yes (Death, Life-Threatening)
  Sender: FDA-Public Use
  Company Number: None

PATIENT
  Age: 39 Year
  Sex: Male
  Weight: 76.5 kg

DRUGS (4)
  1. PROPYLTHIOURACIL. [Suspect]
     Active Substance: PROPYLTHIOURACIL
  2. WARFARIN [Suspect]
     Active Substance: WARFARIN
     Indication: ATRIAL FIBRILLATION
     Route: 048
     Dates: start: 19991101, end: 19991221
  3. FUROSEMIDE. [Suspect]
     Active Substance: FUROSEMIDE
  4. BETAPACE [Suspect]
     Active Substance: SOTALOL HYDROCHLORIDE

REACTIONS (1)
  - Product tampering [None]

NARRATIVE: CASE EVENT DATE: 19991221
